FAERS Safety Report 23501619 (Version 4)
Quarter: 2025Q1

REPORT INFORMATION
  Report Type: Report from Study
  Country: DE (occurrence: DE)
  Receive Date: 20240208
  Receipt Date: 20250228
  Transmission Date: 20250409
  Serious: Yes (Death, Hospitalization, Other)
  Sender: TEVA
  Company Number: None

PATIENT
  Age: 55 Year
  Sex: Female
  Weight: 71 kg

DRUGS (131)
  1. CEFTAZIDIME [Suspect]
     Active Substance: CEFTAZIDIME
     Indication: Pneumonia
     Route: 065
     Dates: start: 19990519, end: 19990520
  2. CEFTAZIDIME [Suspect]
     Active Substance: CEFTAZIDIME
     Indication: Pneumonia
     Dosage: 4 G, QD, INTRAVENOUS BOLUS
     Route: 042
     Dates: start: 19990503, end: 19990517
  3. KONAKION [Concomitant]
     Active Substance: PHYTONADIONE
     Indication: Vitamin K deficiency
     Route: 042
     Dates: start: 19990426, end: 19990517
  4. VITINTRA [Concomitant]
     Active Substance: ERGOCALCIFEROL\PHYTONADIONE\RETINOL\VITAMIN A PALMITATE
     Indication: Nutritional supplementation
     Route: 042
     Dates: start: 19990506, end: 19990516
  5. MAGNESIUM ASPARTATE\POTASSIUM ASPARTATE [Concomitant]
     Active Substance: MAGNESIUM ASPARTATE\POTASSIUM ASPARTATE
     Indication: Nutritional supplementation
     Route: 042
  6. TROMETHAMINE [Suspect]
     Active Substance: TROMETHAMINE
     Indication: Metabolic acidosis
     Route: 042
     Dates: start: 19990518, end: 19990518
  7. TROMETHAMINE [Suspect]
     Active Substance: TROMETHAMINE
     Indication: Metabolic acidosis
     Route: 042
     Dates: start: 19990521
  8. SODIUM CHLORIDE [Concomitant]
     Active Substance: SODIUM CHLORIDE
     Indication: Hyponatraemia
     Dosage: 50 ML, QD
     Route: 042
     Dates: start: 19990429, end: 19990505
  9. SODIUM CHLORIDE [Concomitant]
     Active Substance: SODIUM CHLORIDE
     Indication: Hyponatraemia
     Dosage: 50 MG, QD
     Route: 042
     Dates: start: 19990424, end: 19990505
  10. NOREPINEPHRINE HYDROCHLORIDE, (+/-)- [Suspect]
     Active Substance: NOREPINEPHRINE HYDROCHLORIDE, (+/-)-
     Indication: Cardiovascular disorder
     Dosage: UNK, INTRAVENOUS BOLUS
     Route: 042
     Dates: start: 19990521, end: 19990521
  11. VITAMINS [Concomitant]
     Active Substance: VITAMINS
     Indication: Nutritional supplementation
     Route: 042
  12. TOBRAMYCIN SULFATE [Suspect]
     Active Substance: TOBRAMYCIN SULFATE
     Indication: Pneumonia
     Dosage: 1 DF, QD
     Route: 042
     Dates: start: 19990511, end: 19990514
  13. TOBRAMYCIN SULFATE [Suspect]
     Active Substance: TOBRAMYCIN SULFATE
     Indication: Pneumonia
     Route: 042
     Dates: start: 19990519
  14. TARGOCID [Suspect]
     Active Substance: TEICOPLANIN
     Indication: Pneumonia
     Dosage: 400 MG, QD, INTRAVENOUS BOLUS
     Route: 042
     Dates: start: 19990503
  15. NEUPOGEN [Suspect]
     Active Substance: FILGRASTIM
     Indication: Neutropenia
     Dosage: 700 ?G, QD
     Route: 042
     Dates: start: 19990521, end: 19990521
  16. NYSTATIN [Suspect]
     Active Substance: NYSTATIN
     Indication: Candida infection
     Dosage: 12 ML, ONCE A DAY, UNCLEAR WHETHER ADMINISTERED 3 OR 4 TIMES
     Route: 048
     Dates: start: 19990423, end: 19990423
  17. NYSTATIN [Suspect]
     Active Substance: NYSTATIN
     Indication: Candida infection
     Dosage: 12 ML, QD
     Route: 048
     Dates: start: 19990516, end: 19990523
  18. SEMPERA [Concomitant]
     Active Substance: ITRACONAZOLE
     Indication: Fungal infection
     Dosage: 200 MG, QD
     Route: 048
     Dates: start: 19990429, end: 19990429
  19. CLONT [Concomitant]
     Indication: Bacterial infection
     Dosage: 1500 MG, QD; CLONT [METRONIDAZOLE]
     Route: 048
     Dates: start: 19990427
  20. CLONT [Concomitant]
     Indication: Bacterial infection
     Dosage: 1500 UNK
     Route: 042
     Dates: start: 19990428
  21. DOXYCYCLINE [Suspect]
     Active Substance: DOXYCYCLINE
     Indication: Pneumonia
     Dosage: 2 DF
     Route: 042
     Dates: start: 19990519, end: 19990519
  22. DOXYCYCLINE [Suspect]
     Active Substance: DOXYCYCLINE
     Indication: Pneumonia
     Dosage: 100 MG, QD
     Route: 042
     Dates: start: 19990518, end: 19990519
  23. NYSTATIN [Suspect]
     Active Substance: NYSTATIN
     Indication: Candida infection
     Dosage: 12 ML, QD
     Route: 048
     Dates: start: 19990516, end: 19990523
  24. NYSTATIN [Suspect]
     Active Substance: NYSTATIN
     Indication: Candida infection
     Dosage: 12 ML, QD, 12 ML, ONCE A DAY, UNCLEAR WHETHER ADMINISTERED 3 OR 4 TIMES
     Route: 048
     Dates: start: 19990423, end: 19990423
  25. PANTOPRAZOLE SODIUM [Suspect]
     Active Substance: PANTOPRAZOLE SODIUM
     Indication: Prophylaxis against gastrointestinal ulcer
     Route: 042
     Dates: start: 19990521, end: 19990521
  26. VANCOMYCIN [Suspect]
     Active Substance: VANCOMYCIN
     Indication: Pneumonia
     Dosage: 1000 MG, QD, INTRAVENOUS BOLUS
     Route: 042
     Dates: start: 19990521, end: 19990521
  27. DOXYCYCLINE [Suspect]
     Active Substance: DOXYCYCLINE
     Indication: Pneumonia
     Route: 042
     Dates: start: 19990518
  28. ALPROSTADIL ALFADEX [Suspect]
     Active Substance: ALPROSTADIL ALFADEX
     Indication: Poor peripheral circulation
     Route: 042
     Dates: start: 19990521, end: 19990521
  29. ALPROSTADIL ALFADEX [Suspect]
     Active Substance: ALPROSTADIL ALFADEX
     Indication: Poor peripheral circulation
     Route: 042
     Dates: start: 19990503, end: 19990521
  30. OMEPRAZOLE [Suspect]
     Active Substance: OMEPRAZOLE
     Indication: Prophylaxis against gastrointestinal ulcer
     Dosage: 40 MG, QD, INTRAVENOUS BOLUS
     Route: 042
     Dates: start: 19990502
  31. FAMOTIDINE [Concomitant]
     Active Substance: FAMOTIDINE
     Indication: Prophylaxis against gastrointestinal ulcer
     Dosage: 40 MG, QD
     Route: 042
     Dates: start: 19990502, end: 19990502
  32. PHENYTOIN [Concomitant]
     Active Substance: PHENYTOIN
     Indication: Prophylaxis
     Dosage: 400 MG, QD
     Route: 048
     Dates: start: 19990419, end: 19990427
  33. SUFENTA [Suspect]
     Active Substance: SUFENTANIL CITRATE
     Indication: Anaesthesia
     Route: 042
     Dates: start: 19990521, end: 19990521
  34. ACTRAPID [Suspect]
     Active Substance: INSULIN HUMAN
     Indication: Hyperglycaemia
     Dosage: UNK
     Route: 042
     Dates: start: 19990510, end: 19990520
  35. ACTRAPID [Suspect]
     Active Substance: INSULIN HUMAN
     Indication: Hyperglycaemia
     Dosage: UNK, QD
     Route: 042
     Dates: start: 19990517, end: 19990517
  36. ACTRAPID [Suspect]
     Active Substance: INSULIN HUMAN
     Indication: Hyperglycaemia
     Dosage: UNK
     Route: 042
     Dates: start: 19990519, end: 19990520
  37. ISOPROMETHAZINE HYDROCHLORIDE [Suspect]
     Active Substance: ISOPROMETHAZINE HYDROCHLORIDE
     Indication: Product used for unknown indication
     Route: 042
     Dates: start: 19990518, end: 19990520
  38. ZOVIRAX [Concomitant]
     Active Substance: ACYCLOVIR
     Indication: Prophylaxis
     Route: 042
     Dates: start: 19990419, end: 19990426
  39. ZOVIRAX [Concomitant]
     Active Substance: ACYCLOVIR
     Indication: Prophylaxis
     Route: 042
     Dates: start: 19990426, end: 19990519
  40. CLEMASTINE FUMARATE [Concomitant]
     Active Substance: CLEMASTINE FUMARATE
     Indication: Pruritus
     Route: 065
     Dates: start: 19990524
  41. CLEMASTINE FUMARATE [Concomitant]
     Active Substance: CLEMASTINE FUMARATE
     Indication: Pruritus
     Route: 042
     Dates: start: 19990425
  42. AMPHOTERICIN B [Concomitant]
     Active Substance: AMPHOTERICIN B
     Indication: Candida infection
     Route: 042
     Dates: start: 19990430, end: 19990521
  43. AMPHOTERICIN B [Concomitant]
     Active Substance: AMPHOTERICIN B
     Indication: Candida infection
     Dosage: 20 MILLIGRAM, QD
     Route: 055
     Dates: start: 19990429, end: 19990429
  44. MYLERAN [Concomitant]
     Active Substance: BUSULFAN
     Indication: Bone marrow transplant
     Dosage: 284 UNK, QD
     Route: 048
     Dates: start: 19990423, end: 19990423
  45. CYCLOPHOSPHAMIDE [Concomitant]
     Active Substance: CYCLOPHOSPHAMIDE
     Indication: Bone marrow transplant
     Dosage: 4260 MG, QD
     Route: 042
     Dates: start: 19990425, end: 19990426
  46. SULTANOL [Suspect]
     Active Substance: ALBUTEROL SULFATE
     Indication: Bronchospasm
     Route: 055
     Dates: start: 19990519
  47. THEOPHYLLINE [Suspect]
     Active Substance: THEOPHYLLINE
     Indication: Bronchospasm
     Route: 042
     Dates: start: 19990519, end: 19990520
  48. ATROVENT [Suspect]
     Active Substance: IPRATROPIUM BROMIDE
     Indication: Respiratory failure
     Route: 055
     Dates: start: 19990521, end: 19990521
  49. NOVALGIN (METAMIZOLE SODIUM) [Suspect]
     Active Substance: METAMIZOLE SODIUM
     Indication: Pain
     Route: 042
     Dates: start: 19990427, end: 19990427
  50. NOVALGIN (METAMIZOLE SODIUM) [Suspect]
     Active Substance: METAMIZOLE SODIUM
     Indication: Pain
     Route: 042
     Dates: start: 19990506, end: 19990516
  51. NOVALGIN (METAMIZOLE SODIUM) [Suspect]
     Active Substance: METAMIZOLE SODIUM
     Indication: Pain
     Route: 042
     Dates: start: 19990428
  52. METHOTREXATE [Suspect]
     Active Substance: METHOTREXATE
     Indication: Prophylaxis against transplant rejection
     Route: 042
     Dates: start: 19990429, end: 19990429
  53. METHOTREXATE [Suspect]
     Active Substance: METHOTREXATE
     Indication: Prophylaxis against transplant rejection
     Route: 042
     Dates: start: 19990501, end: 19990501
  54. HEPARIN [Concomitant]
     Active Substance: HEPARIN SODIUM
     Indication: Thrombosis prophylaxis
     Dosage: 18000 IU, QD
     Route: 058
     Dates: start: 19990427, end: 19990427
  55. SODIUM BICARBONATE [Concomitant]
     Active Substance: SODIUM BICARBONATE
     Indication: Product used for unknown indication
     Route: 042
     Dates: start: 19990517, end: 19990517
  56. DEXPANTHENOL [Suspect]
     Active Substance: DEXPANTHENOL
     Indication: Bronchospasm
     Route: 065
     Dates: start: 19990519, end: 19990520
  57. AMPHOTERICIN B [Suspect]
     Active Substance: AMPHOTERICIN B
     Indication: Bronchopulmonary aspergillosis
     Dosage: AMPHOTERICIN B, LIPOSOME, INTRAVENOUS BOLUS
     Route: 042
     Dates: start: 19990430
  58. BROMAZEPAM [Suspect]
     Active Substance: BROMAZEPAM
     Indication: Restlessness
     Dosage: INTRAVENOUS BOLUS
     Route: 042
     Dates: start: 19990503, end: 19990505
  59. BROMAZEPAM [Suspect]
     Active Substance: BROMAZEPAM
     Indication: Restlessness
     Route: 048
     Dates: start: 19990430, end: 19990430
  60. BROMAZEPAM [Suspect]
     Active Substance: BROMAZEPAM
     Indication: Restlessness
     Route: 048
     Dates: start: 19990423, end: 19990505
  61. DEXAMETHASONE [Concomitant]
     Active Substance: DEXAMETHASONE
     Indication: Bone marrow transplant
     Dosage: 24 MG, QD
     Route: 042
     Dates: start: 19990424, end: 19990426
  62. DEXAMETHASONE [Concomitant]
     Active Substance: DEXAMETHASONE
     Indication: Bone marrow transplant
     Route: 055
     Dates: start: 19990519, end: 19990520
  63. MAGNESIUM [Concomitant]
     Active Substance: MAGNESIUM
     Indication: Hypomagnesaemia
     Route: 042
     Dates: start: 19990429, end: 19990513
  64. TAVOR (LORAZEPAM) [Suspect]
     Active Substance: LORAZEPAM
     Indication: Restlessness
     Dosage: 1 MG, QD
     Route: 042
     Dates: start: 19990519, end: 19990520
  65. ZOFRAN [Concomitant]
     Active Substance: ONDANSETRON HYDROCHLORIDE
     Indication: Nausea
     Route: 042
     Dates: start: 19990519
  66. ZOFRAN [Concomitant]
     Active Substance: ONDANSETRON HYDROCHLORIDE
     Indication: Nausea
     Route: 042
     Dates: start: 19990427, end: 19990503
  67. ZOFRAN [Concomitant]
     Active Substance: ONDANSETRON HYDROCHLORIDE
     Indication: Nausea
     Route: 048
     Dates: start: 19990426, end: 19990426
  68. ERYTHROMYCIN [Suspect]
     Active Substance: ERYTHROMYCIN
     Indication: Pneumonia
     Dosage: 1500 MG, QD, INTRAVENOUS BOLUS
     Route: 042
     Dates: start: 19990517
  69. PENTACARINAT [Concomitant]
     Active Substance: PENTAMIDINE ISETHIONATE
     Indication: Pneumonia
     Dosage: 300 MG, QD
     Route: 055
     Dates: start: 19990425, end: 19990425
  70. DEXTROSE [Concomitant]
     Active Substance: DEXTROSE MONOHYDRATE
     Indication: Nutritional supplementation
     Route: 042
     Dates: start: 19990424
  71. CALCIUM GLUCONATE [Concomitant]
     Active Substance: CALCIUM GLUCONATE
     Indication: Hypocalcaemia
     Dosage: 20 ML, QD
     Route: 042
     Dates: start: 19990429, end: 19990508
  72. LAPINE T-LYMPHOCYTE IMMUNE GLOBULIN [Concomitant]
     Active Substance: LAPINE T-LYMPHOCYTE IMMUNE GLOBULIN
     Indication: Bone marrow transplant
     Route: 042
     Dates: start: 19990427, end: 19990427
  73. CLONT [Concomitant]
     Indication: Bacterial infection
     Dosage: 1500 MG, QD
     Route: 048
     Dates: end: 19990427
  74. LENOGRASTIM [Concomitant]
     Active Substance: LENOGRASTIM
     Indication: Neutropenia
     Route: 042
     Dates: start: 19990429
  75. OCTAGAM IMMUNE GLOBULIN (HUMAN) [Concomitant]
     Active Substance: HUMAN IMMUNOGLOBULIN G
     Indication: Bone marrow transplant
     Route: 065
     Dates: start: 19990419, end: 19990429
  76. OCTAGAM IMMUNE GLOBULIN (HUMAN) [Concomitant]
     Active Substance: HUMAN IMMUNOGLOBULIN G
     Indication: Bone marrow transplant
     Route: 042
     Dates: start: 19990429, end: 19990519
  77. PROMETHAZINE HYDROCHLORIDE [Suspect]
     Active Substance: PROMETHAZINE HYDROCHLORIDE
     Indication: Restlessness
     Route: 042
     Dates: start: 19990518, end: 19990520
  78. CAVERJECT [Concomitant]
     Active Substance: ALPROSTADIL
     Indication: Product used for unknown indication
     Route: 042
     Dates: start: 19990503, end: 19990521
  79. CAVERJECT [Concomitant]
     Active Substance: ALPROSTADIL
     Indication: Product used for unknown indication
     Dosage: 1 DF, QD
     Route: 042
     Dates: start: 19990503, end: 19990521
  80. TOBRAMYCIN [Suspect]
     Active Substance: TOBRAMYCIN
     Indication: Pneumonia
     Route: 042
     Dates: start: 19990519
  81. TOBRAMYCIN [Suspect]
     Active Substance: TOBRAMYCIN
     Indication: Pneumonia
     Route: 042
     Dates: start: 19990511, end: 19990514
  82. MORPHINE [Suspect]
     Active Substance: MORPHINE
     Indication: Pain
     Route: 042
     Dates: start: 19990501, end: 19990520
  83. PROPOFOL [Suspect]
     Active Substance: PROPOFOL
     Indication: Anaesthesia
     Route: 042
     Dates: start: 19990521, end: 19990521
  84. FUROSEMIDE [Suspect]
     Active Substance: FUROSEMIDE
     Indication: Oedema
     Route: 042
     Dates: start: 19990506
  85. FUROSEMIDE [Suspect]
     Active Substance: FUROSEMIDE
     Indication: Oedema
     Route: 042
     Dates: start: 19990428, end: 19990502
  86. FUROSEMIDE [Suspect]
     Active Substance: FUROSEMIDE
     Indication: Oedema
     Route: 042
     Dates: start: 19990504, end: 19990504
  87. FUROSEMIDE [Suspect]
     Active Substance: FUROSEMIDE
     Indication: Oedema
     Route: 042
     Dates: start: 19990425, end: 19990425
  88. MESNA [Concomitant]
     Active Substance: MESNA
     Indication: Prophylaxis
     Route: 042
     Dates: start: 19990425, end: 19990426
  89. KCL [Concomitant]
     Active Substance: POTASSIUM CHLORIDE
     Indication: Hypokalaemia
     Route: 042
     Dates: start: 19990424
  90. OFLOXACIN [Suspect]
     Active Substance: OFLOXACIN
     Indication: Pneumonia bacterial
     Dosage: 400 MG, QD
     Route: 042
     Dates: start: 19990428, end: 19990503
  91. INSULIN NOS [Suspect]
     Active Substance: INSULIN NOS
     Indication: Hyperglycaemia
     Route: 042
     Dates: start: 19990517, end: 19990517
  92. INSULIN NOS [Suspect]
     Active Substance: INSULIN NOS
     Indication: Hyperglycaemia
     Dosage: 1 DF, QD
     Route: 042
     Dates: start: 19990519, end: 19990520
  93. AMINO ACIDS, SOURCE UNSPECIFIED [Concomitant]
     Active Substance: AMINO ACIDS, SOURCE UNSPECIFIED
     Indication: Nutritional supplementation
     Dosage: 100 ML, QD
     Route: 042
  94. THEOPHYLLINE ANHYDROUS [Suspect]
     Active Substance: THEOPHYLLINE ANHYDROUS
     Indication: Dyspnoea
     Dosage: 400 MG, QD, INTRAVENOUS BOLUS
     Route: 042
     Dates: start: 19990520, end: 19990520
  95. THEOPHYLLINE ANHYDROUS [Suspect]
     Active Substance: THEOPHYLLINE ANHYDROUS
     Indication: Dyspnoea
     Dosage: 400 MG, QD, INTRAVENOUS BOLUS
     Route: 042
     Dates: start: 19990519, end: 19990519
  96. METHYLPREDNISOLONE [Suspect]
     Active Substance: METHYLPREDNISOLONE
     Indication: Prophylaxis against graft versus host disease
     Route: 042
     Dates: start: 19990427, end: 19990428
  97. METHYLPREDNISOLONE [Suspect]
     Active Substance: METHYLPREDNISOLONE
     Indication: Prophylaxis against graft versus host disease
     Route: 042
     Dates: start: 19990507
  98. METHYLPREDNISOLONE [Suspect]
     Active Substance: METHYLPREDNISOLONE
     Indication: Prophylaxis against graft versus host disease
     Route: 042
     Dates: start: 19990425, end: 19990507
  99. LETROZOLE [Suspect]
     Active Substance: LETROZOLE
     Indication: Coagulopathy
     Dosage: 2 DOSAGE FORM, QD
     Route: 042
     Dates: start: 19990519, end: 19990519
  100. DEXPANTHENOL\HYALURONATE SODIUM [Suspect]
     Active Substance: DEXPANTHENOL\HYALURONATE SODIUM
     Indication: Bronchospasm
     Dosage: BEPANTHEN ROCHE SOLUTION
     Route: 055
     Dates: start: 19990519, end: 19990520
  101. CYCLOSPORINE [Concomitant]
     Active Substance: CYCLOSPORINE
     Indication: Bone marrow transplant
     Route: 042
     Dates: start: 19990427, end: 19990521
  102. DEXPANTHENOL\HYALURONATE SODIUM [Suspect]
     Active Substance: DEXPANTHENOL\HYALURONATE SODIUM
     Indication: Bronchospasm
     Dosage: BEPANTHEN EYE
     Route: 065
     Dates: start: 19990519, end: 19990520
  103. Taraxacum officinale extract Taraxacum officinale powder [Concomitant]
     Indication: Nutritional supplementation
     Route: 042
     Dates: start: 19990518, end: 19990521
  104. ALBUMIN HUMAN [Suspect]
     Active Substance: ALBUMIN HUMAN
     Indication: Hypoalbuminaemia
     Dosage: 250 ML, 1 DOSE 4 HOURS
     Route: 042
     Dates: start: 19990516, end: 19990516
  105. GANCICLOVIR [Suspect]
     Active Substance: GANCICLOVIR
     Indication: Prophylaxis
     Dosage: UNK, CYMEVEN IV
     Route: 042
     Dates: start: 19990519
  106. INTRALIPID [Concomitant]
     Active Substance: EGG PHOSPHOLIPIDS\GLYCERIN\SOYBEAN OIL
     Indication: Nutritional supplementation
     Dosage: 200 ML, QD
     Route: 042
  107. NYSTATIN [Suspect]
     Active Substance: NYSTATIN
     Indication: Candida infection
     Dosage: UNCLEAR WHETHER ADMINISTERED 3 OR 4 TIMES
     Route: 065
     Dates: start: 19990423, end: 19990423
  108. OFLOXACIN [Concomitant]
     Active Substance: OFLOXACIN
     Indication: Pneumonia bacterial
     Route: 048
     Dates: start: 19990527, end: 19990527
  109. OFLOXACIN [Concomitant]
     Active Substance: OFLOXACIN
     Indication: Pneumonia bacterial
     Route: 042
     Dates: start: 19990428, end: 19990503
  110. AMINOMIX [Concomitant]
     Indication: Nutritional supplementation
     Dosage: 1000 ML, QD, AMINOMIX [AMINO ACIDS NOS;ELECTROLYTES NOS;GLUCOSE]
     Route: 042
     Dates: start: 19990417
  111. DOXYCYCLINE [Suspect]
     Active Substance: DOXYCYCLINE
     Indication: Pneumonia
     Route: 042
     Dates: start: 19990429, end: 19990429
  112. AMINOMIX [Concomitant]
     Indication: Nutritional supplementation
     Dosage: 1000 ML, QD
     Route: 042
     Dates: start: 19990417
  113. CALCIUM BROMIDE CALCIUM GLUCONATE [Concomitant]
     Indication: Hypocalcaemia
     Dosage: 20 MILLILITER, QD
     Route: 065
     Dates: start: 19990429, end: 19990508
  114. THEOPHYLLINE SODIUM GLYCINATE [Suspect]
     Active Substance: THEOPHYLLINE SODIUM GLYCINATE
     Indication: Anaesthesia
     Route: 042
     Dates: start: 19990521, end: 19990521
  115. THEOPHYLLINE SODIUM GLYCINATE [Suspect]
     Active Substance: THEOPHYLLINE SODIUM GLYCINATE
     Indication: Anaesthesia
     Route: 042
     Dates: start: 19990520, end: 19990520
  116. AMPHOTERICIN B [Suspect]
     Active Substance: AMPHOTERICIN B
     Indication: Pneumonia mycoplasmal
     Route: 065
     Dates: start: 19990423, end: 19990423
  117. BENZALKONIUM\EDETIC ACID\TOBRAMYCIN [Suspect]
     Active Substance: BENZALKONIUM\EDETIC ACID\TOBRAMYCIN
     Indication: Pneumonia
     Route: 065
     Dates: start: 19990519
  118. BENZALKONIUM\EDETIC ACID\TOBRAMYCIN [Suspect]
     Active Substance: BENZALKONIUM\EDETIC ACID\TOBRAMYCIN
     Indication: Pneumonia
     Route: 065
     Dates: start: 19990511, end: 19990514
  119. BROMAZEPAM [Suspect]
     Active Substance: BROMAZEPAM
     Indication: Restlessness
     Dosage: 3 MG, QD,  TABLETS
     Route: 048
     Dates: start: 19990503, end: 19990505
  120. BROMAZEPAM [Suspect]
     Active Substance: BROMAZEPAM
     Indication: Restlessness
     Route: 048
     Dates: start: 19990430, end: 19990430
  121. BROMAZEPAM [Suspect]
     Active Substance: BROMAZEPAM
     Indication: Restlessness
     Route: 048
     Dates: start: 19990423, end: 19990505
  122. DEXPANTHENOL [Suspect]
     Active Substance: DEXPANTHENOL
     Indication: Bronchospasm
     Route: 042
     Dates: start: 19990521, end: 19990521
  123. TOBRAMYCIN SULFATE [Suspect]
     Active Substance: TOBRAMYCIN SULFATE
     Indication: Pneumonia
     Route: 065
     Dates: start: 19990521, end: 19990521
  124. BENZALKONIUM\DEXAMETHASONE\TOBRAMYCIN [Suspect]
     Active Substance: BENZALKONIUM\DEXAMETHASONE\TOBRAMYCIN
     Indication: Pneumonia
     Route: 065
     Dates: start: 19990519
  125. CYCLOPHOSPHAMIDE [Suspect]
     Active Substance: CYCLOPHOSPHAMIDE
     Indication: Bone marrow transplant
     Dosage: 4260 MG, QD
     Route: 042
     Dates: start: 19990425, end: 19990426
  126. NACLO [Concomitant]
     Indication: Hyponatraemia
     Dosage: 50 MILLILITER, QD
     Route: 065
     Dates: start: 19990429, end: 19990505
  127. ANNACLOX [Concomitant]
     Indication: Volume blood decreased
     Route: 065
     Dates: start: 19990424, end: 19990426
  128. ANNACLOX [Concomitant]
     Indication: Volume blood decreased
     Dosage: 50 MILLIGRAM, QD
     Route: 065
     Dates: start: 19990424, end: 19990505
  129. ACETYLCYSTEINE [Suspect]
     Active Substance: ACETYLCYSTEINE
     Indication: Mucositis management
     Dosage: UNK, QD, INTRAVENOUS BOLUS
     Route: 042
     Dates: start: 19990502
  130. FILGRASTIM [Suspect]
     Active Substance: FILGRASTIM
     Indication: Neutropenia
     Route: 065
     Dates: start: 19990429
  131. AMINO ACIDS\DEXTRAN\INSULIN NOS [Suspect]
     Active Substance: AMINO ACIDS\DEXTRAN\INSULIN NOS
     Indication: Hyperglycaemia
     Route: 065
     Dates: start: 19990517, end: 19990517

REACTIONS (3)
  - Stevens-Johnson syndrome [Fatal]
  - Toxic epidermal necrolysis [Unknown]
  - Off label use [Fatal]

NARRATIVE: CASE EVENT DATE: 19990521
